FAERS Safety Report 26159018 (Version 1)
Quarter: 2025Q4

REPORT INFORMATION
  Report Type: Report from Study
  Country: CA (occurrence: CA)
  Receive Date: 20251215
  Receipt Date: 20251215
  Transmission Date: 20260117
  Serious: Yes (Other)
  Sender: JOHNSON AND JOHNSON
  Company Number: CA-JNJFOC-20251216196

PATIENT
  Age: 59 Year
  Sex: Female

DRUGS (1)
  1. SIMPONI [Suspect]
     Active Substance: GOLIMUMAB
     Indication: Ankylosing spondylitis
     Route: 041

REACTIONS (6)
  - Upper limb fracture [Unknown]
  - Foot fracture [Unknown]
  - Fall [Unknown]
  - Wound infection [Unknown]
  - Road traffic accident [Unknown]
  - Wound [Unknown]

NARRATIVE: CASE EVENT DATE: 20250301
